FAERS Safety Report 14125106 (Version 4)
Quarter: 2020Q4

REPORT INFORMATION
  Report Type: Report from Study
  Country: CR (occurrence: CR)
  Receive Date: 20171025
  Receipt Date: 20201112
  Transmission Date: 20210113
  Serious: Yes (Life-Threatening, Other)
  Sender: FDA-Public Use
  Company Number: PHHY2017CR155131

PATIENT
  Age: 69 Year
  Sex: Female
  Weight: 63 kg

DRUGS (6)
  1. ENALAPRIL [Concomitant]
     Active Substance: ENALAPRIL
     Indication: PRODUCT USED FOR UNKNOWN INDICATION
     Dosage: UNK
     Route: 065
  2. SANDOSTATIN LAR DEPOT [Suspect]
     Active Substance: OCTREOTIDE ACETATE
     Indication: PITUITARY TUMOUR
     Dosage: 20 MG, QMO (SINCE APPROX 6-7 YEARS)
     Route: 030
     Dates: start: 2013
  3. SANDOSTATIN LAR DEPOT [Suspect]
     Active Substance: OCTREOTIDE ACETATE
     Indication: ACROMEGALY
  4. LEVOTHYROXINE. [Concomitant]
     Active Substance: LEVOTHYROXINE
     Indication: HORMONE REPLACEMENT THERAPY
     Dosage: 100 MG, QD
     Route: 065
  5. INSULIN [Concomitant]
     Active Substance: INSULIN NOS
     Indication: PRODUCT USED FOR UNKNOWN INDICATION
     Dosage: 10 UNITS BY THE MORNING, 10 UNITS AT NOON AND 10 UNITS IN THE AFTERNOON
     Route: 065
  6. SANDOSTATIN LAR DEPOT [Suspect]
     Active Substance: OCTREOTIDE ACETATE

REACTIONS (27)
  - Blood glucose decreased [Not Recovered/Not Resolved]
  - Fall [Unknown]
  - Limb discomfort [Unknown]
  - Swelling [Unknown]
  - Brain hypoxia [Unknown]
  - Hip fracture [Unknown]
  - Deformity [Unknown]
  - Tongue thrust [Unknown]
  - Memory impairment [Unknown]
  - Malaise [Unknown]
  - Groin pain [Not Recovered/Not Resolved]
  - Feeling abnormal [Unknown]
  - Hormone level abnormal [Unknown]
  - Hand deformity [Unknown]
  - Hypothalamo-pituitary disorder [Unknown]
  - Pituitary enlargement [Unknown]
  - Hypoglycaemia [Not Recovered/Not Resolved]
  - Altered state of consciousness [Unknown]
  - Loss of consciousness [Unknown]
  - Foot deformity [Unknown]
  - Thyroid disorder [Unknown]
  - Exophthalmos [Unknown]
  - Dyskinesia [Unknown]
  - Gait disturbance [Unknown]
  - Arthralgia [Not Recovered/Not Resolved]
  - Hypoxia [Unknown]
  - Pain in extremity [Not Recovered/Not Resolved]

NARRATIVE: CASE EVENT DATE: 20170721
